FAERS Safety Report 4777669-5 (Version None)
Quarter: 2005Q3

REPORT INFORMATION
  Report Type: 
  Country: None (occurrence: None)
  Receive Date: 20050923
  Receipt Date: 20050610
  Transmission Date: 20060218
  Serious: Yes (Hospitalization, Disabling, Other)
  Sender: FDA-Public Use
  Company Number: US-MERCK-0506USA01845

PATIENT
  Age: 58 Year
  Sex: Female
  Weight: 59 kg

DRUGS (12)
  1. VIOXX [Suspect]
     Indication: ARTHRITIS
     Route: 048
     Dates: start: 20010813, end: 20010817
  2. VIOXX [Suspect]
     Route: 048
     Dates: start: 20040401, end: 20040518
  3. VIOXX [Suspect]
     Route: 048
     Dates: start: 20010818, end: 20040401
  4. VIOXX [Suspect]
     Indication: POLYMYALGIA RHEUMATICA
     Route: 048
     Dates: start: 20010813, end: 20010817
  5. VIOXX [Suspect]
     Route: 048
     Dates: start: 20040401, end: 20040518
  6. VIOXX [Suspect]
     Route: 048
     Dates: start: 20010818, end: 20040401
  7. FOSAMAX [Concomitant]
     Indication: OSTEOPOROSIS
     Route: 065
  8. SYNTHROID [Concomitant]
     Indication: HYPERTHYROIDISM
     Route: 065
  9. PREDNISONE [Concomitant]
     Indication: FIBROMYALGIA
     Route: 065
  10. LIPITOR [Concomitant]
     Indication: BLOOD CHOLESTEROL INCREASED
     Route: 065
     Dates: start: 20010901
  11. TYLENOL (CAPLET) [Concomitant]
     Indication: HEADACHE
     Route: 065
     Dates: start: 20040501
  12. TYLENOL (CAPLET) [Concomitant]
     Indication: OSTEOARTHRITIS
     Route: 065
     Dates: start: 20040501

REACTIONS (26)
  - ACUTE MYOCARDIAL INFARCTION [None]
  - ANGINA PECTORIS [None]
  - APPENDICITIS [None]
  - BLEPHARITIS [None]
  - CARDIAC ANEURYSM [None]
  - CARDIAC FAILURE CONGESTIVE [None]
  - CATARACT [None]
  - CORONARY ARTERY DISEASE [None]
  - CORONARY ARTERY STENOSIS [None]
  - DEPRESSION [None]
  - EJECTION FRACTION DECREASED [None]
  - HYDRONEPHROSIS [None]
  - HYPERKALAEMIA [None]
  - INTERSTITIAL LUNG DISEASE [None]
  - ISCHAEMIC CARDIOMYOPATHY [None]
  - KERATITIS [None]
  - LACRIMATION DECREASED [None]
  - LUNG INFECTION [None]
  - MACULAR DEGENERATION [None]
  - MALIGNANT MELANOMA [None]
  - METASTASES TO BREAST [None]
  - MYOCARDIAL ISCHAEMIA [None]
  - PRESBYOPIA [None]
  - REFRACTION DISORDER [None]
  - RENAL FAILURE [None]
  - VENTRICULAR DYSFUNCTION [None]
